FAERS Safety Report 5957720-7 (Version None)
Quarter: 2008Q4

REPORT INFORMATION
  Report Type: 
  Country: None (occurrence: None)
  Receive Date: 20081117
  Receipt Date: 20081104
  Transmission Date: 20090506
  Serious: Yes (Other)
  Sender: FDA-Public Use
  Company Number: 1000001582

PATIENT
  Age: 58 Year
  Sex: Male

DRUGS (16)
  1. LEXAPRO [Suspect]
     Indication: DEPRESSION
     Dates: start: 20031001, end: 20060101
  2. XANAX [Suspect]
     Indication: ANXIETY
     Dates: start: 20031001
  3. ZOLOFT [Suspect]
     Dates: start: 20031001
  4. NEURONTIN [Suspect]
     Indication: AMNESIA
     Dates: start: 20031001
  5. TRAZODONE HCL [Suspect]
     Dates: start: 20031001
  6. SEROQUEL [Suspect]
     Indication: DEPRESSION
     Dates: start: 20031001, end: 20070101
  7. WELLBUTRIN [Suspect]
     Indication: DEPRESSION
     Dates: start: 20031001, end: 20070101
  8. RESTORIL [Suspect]
     Indication: DEPRESSION
     Dates: start: 20031001, end: 20070101
  9. CYMBALTA [Suspect]
     Indication: DEPRESSION
     Dates: start: 20031001, end: 20070101
  10. FENOFIBRATE [Concomitant]
  11. LEVOTHYROXINE SODIUM [Concomitant]
  12. AMBIEN [Concomitant]
  13. HYDROCHLOROTHIAZIDE [Concomitant]
  14. HYDROCODONE BITARTRATE + ACETAMINOPHEN [Concomitant]
  15. CARISOPRODOL [Concomitant]
  16. LISINOPRIL [Concomitant]

REACTIONS (49)
  - ACTIVITIES OF DAILY LIVING IMPAIRED [None]
  - AMNESIA [None]
  - ANGER [None]
  - ANOREXIA [None]
  - ANXIETY [None]
  - APHASIA [None]
  - ASBESTOSIS [None]
  - ATTENTION DEFICIT/HYPERACTIVITY DISORDER [None]
  - BACK PAIN [None]
  - BLOOD CHOLESTEROL INCREASED [None]
  - BLOOD TRIGLYCERIDES ABNORMAL [None]
  - BRUXISM [None]
  - CONDITION AGGRAVATED [None]
  - CONSTIPATION [None]
  - CONVULSION [None]
  - DEPRESSION [None]
  - EMOTIONAL DISTRESS [None]
  - FEELING ABNORMAL [None]
  - HALLUCINATION [None]
  - HEADACHE [None]
  - HYPERHIDROSIS [None]
  - HYPERTENSION [None]
  - HYPOTHYROIDISM [None]
  - INSOMNIA [None]
  - LETHARGY [None]
  - MENTAL DISORDER [None]
  - MUSCLE TWITCHING [None]
  - NIGHTMARE [None]
  - PAIN [None]
  - PALLOR [None]
  - PANCREATITIS [None]
  - PANIC ATTACK [None]
  - PYREXIA [None]
  - RENAL FAILURE [None]
  - RESTLESS LEGS SYNDROME [None]
  - ROAD TRAFFIC ACCIDENT [None]
  - SCREAMING [None]
  - SEDATION [None]
  - SLEEP APNOEA SYNDROME [None]
  - SUICIDAL IDEATION [None]
  - SUICIDE ATTEMPT [None]
  - TACHYCARDIA [None]
  - TARDIVE DYSKINESIA [None]
  - TERMINAL INSOMNIA [None]
  - TREATMENT NONCOMPLIANCE [None]
  - URINARY INCONTINENCE [None]
  - VOMITING [None]
  - WEIGHT DECREASED [None]
  - WITHDRAWAL SYNDROME [None]
